FAERS Safety Report 17066968 (Version 4)
Quarter: 2020Q3

REPORT INFORMATION
  Report Type: Report from Study
  Country: CO (occurrence: CO)
  Receive Date: 20191122
  Receipt Date: 20191220
  Transmission Date: 20201104
  Serious: Yes (Hospitalization)
  Sender: FDA-Public Use
  Company Number: NVSC2019CO038282

PATIENT
  Age: 9 Year
  Sex: Female
  Weight: 25.7 kg

DRUGS (7)
  1. JADENU [Suspect]
     Active Substance: DEFERASIROX
     Indication: IRON OVERLOAD
     Dosage: 360 MG, QD
     Route: 048
     Dates: start: 2015, end: 20190905
  2. CYCLOSPORINE. [Suspect]
     Active Substance: CYCLOSPORINE
     Indication: BONE MARROW TRANSPLANT
     Dosage: 100 MG, Q12H
     Route: 048
  3. VALGANCICLOVIR. [Concomitant]
     Active Substance: VALGANCICLOVIR
     Indication: PRODUCT USED FOR UNKNOWN INDICATION
     Route: 065
  4. MAGNESIUM SULPHATE [Concomitant]
     Active Substance: MAGNESIUM SULFATE
     Indication: BONE MARROW TRANSPLANT
     Dosage: UNK, QD
     Route: 048
  5. FLUCONAZOLE. [Concomitant]
     Active Substance: FLUCONAZOLE
     Indication: BONE MARROW TRANSPLANT
     Dosage: UNK, QD
     Route: 048
  6. ACYCLOVIR. [Concomitant]
     Active Substance: ACYCLOVIR
     Indication: BONE MARROW TRANSPLANT
     Dosage: UNK, Q8H
     Route: 065
  7. TRIMETHOPRIM. [Concomitant]
     Active Substance: TRIMETHOPRIM
     Indication: BONE MARROW TRANSPLANT
     Dosage: (MONDAYS, WEDNESDAYS AND FRIDAYS TWICE DAILY)
     Route: 048

REACTIONS (6)
  - Serum ferritin increased [Unknown]
  - Pleural effusion [Recovered/Resolved]
  - Haemoglobin decreased [Recovered/Resolved]
  - Platelet count decreased [Recovered/Resolved]
  - Product use issue [Unknown]
  - Diarrhoea [Recovered/Resolved]

NARRATIVE: CASE EVENT DATE: 20191129
